FAERS Safety Report 7333567-4 (Version None)
Quarter: 2011Q1

REPORT INFORMATION
  Report Type: 
  Country: None (occurrence: None)
  Receive Date: 20110304
  Receipt Date: 20110224
  Transmission Date: 20110831
  Serious: Yes (Other)
  Sender: FDA-Public Use
  Company Number: US-AMGEN-USASP2011010839

PATIENT
  Age: 48 Year
  Sex: Male

DRUGS (9)
  1. VECTICAL OINTMENT [Concomitant]
  2. ANTIOXIDANTS [Concomitant]
  3. FISH OIL [Concomitant]
  4. MULTIVITAMIN [Concomitant]
  5. DIFLUCAN [Concomitant]
  6. CIALIS [Concomitant]
  7. BACTROBAN [Concomitant]
  8. DIPROLENE [Concomitant]
  9. ENBREL [Suspect]
     Indication: PSORIASIS
     Dosage: 50 MG, 2 TIMES/WK
     Dates: start: 20110217

REACTIONS (10)
  - FEELING ABNORMAL [None]
  - COUGH [None]
  - CONFUSIONAL STATE [None]
  - BACK PAIN [None]
  - FUNGAL INFECTION [None]
  - CHILLS [None]
  - MALAISE [None]
  - HUNGER [None]
  - UPPER RESPIRATORY TRACT CONGESTION [None]
  - ARTHRALGIA [None]
